FAERS Safety Report 6823749-X (Version None)
Quarter: 2010Q3

REPORT INFORMATION
  Report Type: 
  Country: None (occurrence: None)
  Receive Date: 20100708
  Receipt Date: 20060906
  Transmission Date: 20110219
  Serious: No
  Sender: FDA-Public Use
  Company Number: US-PFIZER INC-2006109759

PATIENT
  Sex: Male
  Weight: 62.14 kg

DRUGS (6)
  1. VARENICLINE [Suspect]
     Indication: EX-TOBACCO USER
     Dates: start: 20060831
  2. CLONAZEPAM [Concomitant]
  3. CENTRUM SILVER [Concomitant]
  4. TAMSULOSIN HCL [Concomitant]
  5. ALL OTHER THERAPEUTIC PRODUCTS [Concomitant]
  6. ALEVE (CAPLET) [Concomitant]

REACTIONS (1)
  - DYSGEUSIA [None]
